FAERS Safety Report 9846889 (Version 1)
Quarter: 2014Q1

REPORT INFORMATION
  Report Type: Spontaneous
  Country: US (occurrence: US)
  Receive Date: 20140127
  Receipt Date: 20140127
  Transmission Date: 20141002
  Serious: Yes (Other)
  Sender: FDA-Public Use
  Company Number: US-PFIZER INC-2014021718

PATIENT
  Age: 77 Year
  Sex: Female
  Weight: 83.9 kg

DRUGS (17)
  1. CELEBREX [Suspect]
     Indication: RHEUMATOID ARTHRITIS
     Dosage: UNK
     Dates: end: 201309
  2. LIPITOR [Suspect]
     Indication: BLOOD CHOLESTEROL INCREASED
     Dosage: 20 MG, 1X/DAY
     Route: 048
     Dates: start: 2012
  3. NEURONTIN [Suspect]
     Indication: PAIN
     Dosage: 400 MG, 3X/DAY
     Route: 048
  4. PRISTIQ [Suspect]
     Indication: DEPRESSION
     Dosage: 50 MG, 1X/DAY
     Route: 048
  5. PRISTIQ [Suspect]
     Indication: ANXIETY
  6. CITALOPRAM [Concomitant]
     Dosage: UNK
  7. CETIRIZINE [Concomitant]
     Dosage: UNK
  8. VITAMIN C [Concomitant]
     Dosage: UNK
  9. VITAMIN D3 [Concomitant]
     Dosage: UNK
  10. DILTIAZEM [Concomitant]
     Dosage: 180 MG, UNK
  11. VICODIN [Concomitant]
     Dosage: 5/325 MG, UNK
  12. PREDNISONE [Concomitant]
     Dosage: 10 MG, 1X/DAY
  13. METFORMIN [Concomitant]
     Indication: DIABETES MELLITUS
     Dosage: UNK
  14. PANTOPRAZOLE [Concomitant]
     Dosage: UNK
  15. OMEGA 3 [Concomitant]
     Dosage: UNK
  16. GLIPIZIDE [Concomitant]
     Dosage: HALF TABLET OF 5MG, UNK
  17. LACTOBACILLUS [Concomitant]
     Dosage: UNK

REACTIONS (4)
  - Haemorrhage [Recovered/Resolved]
  - Blood count abnormal [Recovered/Resolved]
  - Fracture [Unknown]
  - Off label use [Unknown]
